FAERS Safety Report 7074145-4 (Version None)
Quarter: 2010Q4

REPORT INFORMATION
  Report Type: 
  Country: None (occurrence: None)
  Receive Date: 20101029
  Receipt Date: 20101021
  Transmission Date: 20110411
  Serious: Yes (Other)
  Sender: FDA-Public Use
  Company Number: BR-PFIZER INC-2010134348

PATIENT
  Sex: Female
  Weight: 108 kg

DRUGS (8)
  1. CHAMPIX [Suspect]
     Indication: TOBACCO USER
     Dosage: UNK
     Route: 048
  2. PURAN T4 [Concomitant]
     Indication: THYROID DISORDER
     Dosage: 88 MG, 1X/DAY
  3. LASIX [Concomitant]
     Indication: OEDEMA PERIPHERAL
     Dosage: 40 MG, 1X/DAY
  4. PREDNISOLONE [Concomitant]
     Dosage: 2.5 MG, ALTERNATE DAY
     Dates: end: 20101027
  5. SPIRIVA [Concomitant]
     Indication: DYSPNOEA
     Dosage: 2.5 MG, 1X/DAY
  6. FORASEQ [Concomitant]
     Indication: DYSPNOEA
     Dosage: 400 MG, 2X/DAY
     Dates: start: 20020101
  7. RIVOTRIL [Concomitant]
     Indication: ANXIETY DISORDER
     Dosage: 1 MG, 1X/DAY
  8. RIVOTRIL [Concomitant]
     Indication: CRYING

REACTIONS (4)
  - BLOOD PRESSURE FLUCTUATION [None]
  - HYPERTENSION [None]
  - NAUSEA [None]
  - PAROSMIA [None]
